FAERS Safety Report 9956837 (Version 1)
Quarter: 2014Q1

REPORT INFORMATION
  Report Type: Report from Study
  Country: US (occurrence: US)
  Receive Date: 20140304
  Receipt Date: 20140304
  Transmission Date: 20141002
  Serious: No
  Sender: FDA-Public Use
  Company Number: US-ABBVIE-13P-163-1098730-00

PATIENT
  Sex: 0

DRUGS (8)
  1. HUMIRA [Suspect]
     Indication: RHEUMATOID ARTHRITIS
     Dates: start: 20130531
  2. PREDNISONE [Concomitant]
     Indication: RHEUMATOID ARTHRITIS
  3. METHOTREXATE [Concomitant]
     Indication: RHEUMATOID ARTHRITIS
  4. FOLIC ACID [Concomitant]
     Indication: RHEUMATOID ARTHRITIS
  5. LEUFLUOMIDE [Concomitant]
     Indication: RHEUMATOID ARTHRITIS
  6. LEUKOVORIN [Concomitant]
     Indication: RHEUMATOID ARTHRITIS
  7. VITAMIN D [Concomitant]
     Indication: VITAMIN SUPPLEMENTATION
  8. FENTANYL [Concomitant]
     Indication: BACK PAIN

REACTIONS (1)
  - Drug ineffective [Not Recovered/Not Resolved]
